FAERS Safety Report 24373218 (Version 1)
Quarter: 2024Q3

REPORT INFORMATION
  Report Type: Spontaneous
  Country: US (occurrence: US)
  Receive Date: 20240927
  Receipt Date: 20240927
  Transmission Date: 20241017
  Serious: Yes (Other)
  Sender: GLENMARK
  Company Number: US-GLENMARK PHARMACEUTICALS-2024GMK094128

PATIENT

DRUGS (10)
  1. FROVATRIPTAN SUCCINATE [Suspect]
     Active Substance: FROVATRIPTAN SUCCINATE
     Indication: Migraine
     Dosage: 5-25 MG, PRN
     Route: 065
  2. NURTEC ODT [Suspect]
     Active Substance: RIMEGEPANT SULFATE
     Indication: Migraine prophylaxis
     Dosage: 75 MILLIGRAM, QOD
     Route: 065
     Dates: start: 202208, end: 20240118
  3. NURTEC ODT [Suspect]
     Active Substance: RIMEGEPANT SULFATE
     Dosage: 75 MILLIGRAM, PRN
     Route: 065
  4. BOTOX [Suspect]
     Active Substance: ONABOTULINUMTOXINA
     Indication: Migraine prophylaxis
     Dosage: 10 UNITS, Q 10-12 WEEKS
     Route: 065
     Dates: start: 20231016
  5. AMITRIPTYLINE [Suspect]
     Active Substance: AMITRIPTYLINE
     Indication: Migraine prophylaxis
     Dosage: 40-50 MG, QD
     Route: 065
     Dates: start: 20231115
  6. PROPRANOLOL [Suspect]
     Active Substance: PROPRANOLOL HYDROCHLORIDE
     Indication: Migraine prophylaxis
     Dosage: 20-30 MG, BID
     Route: 065
     Dates: start: 20240618
  7. LIDOCAINE [Suspect]
     Active Substance: LIDOCAINE
     Indication: Migraine prophylaxis
     Dosage: 100 MILLIGRAM
     Route: 065
     Dates: start: 20240118
  8. TYLENOL [Suspect]
     Active Substance: ACETAMINOPHEN
     Indication: Migraine
     Dosage: 1000-2000 MG
     Route: 065
  9. ADVIL [Suspect]
     Active Substance: IBUPROFEN\IBUPROFEN SODIUM
     Indication: Migraine prophylaxis
     Dosage: 500 MILLIGRAM, PRN
     Route: 065
  10. MAXALT [Suspect]
     Active Substance: RIZATRIPTAN BENZOATE
     Indication: Migraine
     Dosage: 10 MILLIGRAM, PRN
     Route: 065

REACTIONS (2)
  - Foetal heart rate abnormal [Recovered/Resolved]
  - Foetal exposure during pregnancy [Unknown]

NARRATIVE: CASE EVENT DATE: 20240712
